FAERS Safety Report 15110518 (Version 2)
Quarter: 2018Q3

REPORT INFORMATION
  Report Type: Spontaneous
  Country: US (occurrence: US)
  Receive Date: 20180705
  Receipt Date: 20180711
  Transmission Date: 20181010
  Serious: Yes (Other)
  Sender: FDA-Public Use
  Company Number: US-HORIZON-RAV-0101-2018

PATIENT
  Age: 17 Year
  Sex: Male

DRUGS (4)
  1. SODIUM BENZOATE [Concomitant]
     Active Substance: SODIUM BENZOATE
  2. AMINO ACID POWDER [Concomitant]
  3. CITRULLINE [Concomitant]
     Active Substance: CITRULLINE
  4. RAVICTI [Suspect]
     Active Substance: GLYCEROL PHENYLBUTYRATE
     Indication: UREA CYCLE DISORDER
     Dosage: 3.5 ML TID
     Dates: end: 201806

REACTIONS (1)
  - Liver transplant [Recovered/Resolved]

NARRATIVE: CASE EVENT DATE: 20180615
